FAERS Safety Report 7321934-4 (Version None)
Quarter: 2011Q1

REPORT INFORMATION
  Report Type: 
  Country: None (occurrence: None)
  Receive Date: 20110228
  Receipt Date: 20110221
  Transmission Date: 20110831
  Serious: Yes (Other)
  Sender: FDA-Public Use
  Company Number: GB-BAXTER-2011BH004571

PATIENT
  Sex: Female

DRUGS (5)
  1. CYCLOPHOSPHAMIDE [Suspect]
     Indication: BREAST CANCER
     Route: 065
  2. TAMOXIFEN GENERIC [Suspect]
     Indication: BREAST CANCER
     Route: 065
  3. FLUOROURACIL [Suspect]
     Indication: BREAST CANCER
     Route: 065
  4. RADIOTHERAPY [Suspect]
     Indication: BREAST CANCER
     Route: 065
  5. METHOTREXATE [Suspect]
     Indication: BREAST CANCER
     Route: 065

REACTIONS (1)
  - ANGIOSARCOMA [None]
